FAERS Safety Report 11666818 (Version 1)
Quarter: 2015Q4

REPORT INFORMATION
  Report Type: Spontaneous
  Country: US (occurrence: US)
  Receive Date: 20151027
  Receipt Date: 20151027
  Transmission Date: 20160304
  Serious: No
  Sender: FDA-Public Use
  Company Number: US-ELI_LILLY_AND_COMPANY-US201002003071

PATIENT
  Sex: Female

DRUGS (1)
  1. FORTEO [Suspect]
     Active Substance: TERIPARATIDE
     Indication: OSTEOPOROSIS
     Dosage: 20 UG, DAILY (1/D)
     Dates: start: 200805

REACTIONS (13)
  - Malaise [Unknown]
  - Arthralgia [Unknown]
  - Bone disorder [Unknown]
  - Deformity [Unknown]
  - Pain in extremity [Unknown]
  - Feeling abnormal [Unknown]
  - Fear [Unknown]
  - Weight gain poor [Unknown]
  - Skin discolouration [Recovered/Resolved]
  - Joint dislocation [Unknown]
  - Arthropathy [Unknown]
  - Asthenia [Unknown]
  - Arthritis [Unknown]

NARRATIVE: CASE EVENT DATE: 2009
